FAERS Safety Report 16052464 (Version 1)
Quarter: 2019Q1

REPORT INFORMATION
  Report Type: Spontaneous
  Country: US (occurrence: US)
  Receive Date: 20190308
  Receipt Date: 20190308
  Transmission Date: 20190418
  Serious: Yes (Hospitalization)
  Sender: FDA-Public Use
  Company Number: US-PROCTER_AND_GAMBLE-GS19006513

PATIENT
  Age: 25 Year
  Sex: Female
  Weight: 45.35 kg

DRUGS (2)
  1. PRENATAL SUPPLEMENTS [Concomitant]
     Indication: PREGNANCY
     Dosage: UNK, DAILY
  2. CREST 3D WHITE GLAMOROUS WHITE [Suspect]
     Active Substance: SODIUM FLUORIDE
     Dosage: PEA SIZE AMOUNT TWICE A DAY, ONLY USING 4-5 TIMES TOTAL
     Route: 002
     Dates: start: 20190106, end: 20190108

REACTIONS (9)
  - Oral pain [Recovered/Resolved]
  - Glossitis [Recovered/Resolved]
  - Corrosive oropharyngeal injury [Recovered/Resolved]
  - Mouth injury [Recovered/Resolved]
  - Tongue injury [Recovered/Resolved]
  - Maternal exposure during pregnancy [Unknown]
  - Premature labour [Recovered/Resolved]
  - Tongue discomfort [Recovered/Resolved]
  - Stomatitis [Recovered/Resolved]

NARRATIVE: CASE EVENT DATE: 201901
